FAERS Safety Report 4382120-3 (Version None)
Quarter: 2004Q2

REPORT INFORMATION
  Report Type: 
  Country: None (occurrence: None)
  Receive Date: 20040603
  Receipt Date: 20030408
  Transmission Date: 20050107
  Serious: Yes (Other)
  Sender: FDA-Public Use
  Company Number: 200221586US

PATIENT
  Age: 60 Year
  Sex: Male
  Weight: 95.45 kg

DRUGS (8)
  1. LOVENOX [Suspect]
     Indication: ANGINA UNSTABLE
     Dosage: 1 MG/MK Q12H SC
     Route: 058
     Dates: start: 20021028
  2. LOVENOX [Suspect]
     Indication: CORONARY ANGIOPLASTY
     Dosage: 1 MG/MK Q12H SC
     Route: 058
     Dates: start: 20021028
  3. LOVENOX [Suspect]
     Indication: ANGINA UNSTABLE
     Dosage: 0.35 MG/KG ONCE IV
     Route: 042
     Dates: start: 20021030, end: 20021030
  4. LOVENOX [Suspect]
     Indication: CORONARY ANGIOPLASTY
     Dosage: 0.35 MG/KG ONCE IV
     Route: 042
     Dates: start: 20021030, end: 20021030
  5. TIROFIBAN [Concomitant]
  6. ASPIRIN [Concomitant]
  7. CLOPIDOGREL BISULFATE [Concomitant]
  8. NITRATES [Concomitant]

REACTIONS (1)
  - CORONARY ARTERY THROMBOSIS [None]
